FAERS Safety Report 11026444 (Version 4)
Quarter: 2016Q3

REPORT INFORMATION
  Report Type: Spontaneous
  Country: US (occurrence: US)
  Receive Date: 20150414
  Receipt Date: 20160701
  Transmission Date: 20161109
  Serious: Yes (Other)
  Sender: FDA-Public Use
  Company Number: US-009507513-1504USA005260

PATIENT
  Sex: Male

DRUGS (2)
  1. PROPECIA [Suspect]
     Active Substance: FINASTERIDE
     Indication: ANDROGENETIC ALOPECIA
     Dosage: UNK UNK, QD
     Route: 048
     Dates: start: 1999, end: 2000
  2. PROPECIA [Suspect]
     Active Substance: FINASTERIDE
     Dosage: 1 MG, UNK
     Route: 048
     Dates: start: 2000, end: 2005

REACTIONS (18)
  - Sperm concentration decreased [Unknown]
  - Prostatic specific antigen increased [Unknown]
  - Hypokalaemia [Recovering/Resolving]
  - Polycythaemia [Unknown]
  - Sciatica [Unknown]
  - Intervertebral disc protrusion [Unknown]
  - Nephrolithiasis [Unknown]
  - Acute stress disorder [Unknown]
  - Hypertriglyceridaemia [Recovering/Resolving]
  - Organic erectile dysfunction [Not Recovered/Not Resolved]
  - Sexual dysfunction [Not Recovered/Not Resolved]
  - Melanocytic naevus [Unknown]
  - Myocardial ischaemia [Unknown]
  - Hypertension [Recovering/Resolving]
  - Nephrolithiasis [Unknown]
  - Basal cell carcinoma [Unknown]
  - Lumbar spinal stenosis [Unknown]
  - Hyperlipidaemia [Recovering/Resolving]

NARRATIVE: CASE EVENT DATE: 2000
